FAERS Safety Report 15937711 (Version 1)
Quarter: 2019Q1

REPORT INFORMATION
  Report Type: Spontaneous
  Country: US (occurrence: US)
  Receive Date: 20190208
  Receipt Date: 20190208
  Transmission Date: 20190417
  Serious: No
  Sender: FDA-Public Use
  Company Number: US-ROCHE-2152690

PATIENT
  Age: 54 Year
  Sex: Female
  Weight: 102.15 kg

DRUGS (2)
  1. XOLAIR [Suspect]
     Active Substance: OMALIZUMAB
     Indication: ASTHMA
     Route: 058
     Dates: start: 20180612
  2. XOLAIR [Suspect]
     Active Substance: OMALIZUMAB
     Dosage: ONGOING:NO
     Route: 058
     Dates: start: 20180525, end: 20180816

REACTIONS (5)
  - Injection site pain [Unknown]
  - Joint swelling [Unknown]
  - Joint swelling [Unknown]
  - Arthropathy [Unknown]
  - Sinusitis [Unknown]

NARRATIVE: CASE EVENT DATE: 20180621
